FAERS Safety Report 8290359-X (Version None)
Quarter: 2012Q2

REPORT INFORMATION
  Report Type: 
  Country: None (occurrence: None)
  Receive Date: 20120417
  Receipt Date: 20120404
  Transmission Date: 20120825
  Serious: Yes (Other)
  Sender: FDA-Public Use
  Company Number: IL-ELI_LILLY_AND_COMPANY-IL201204002040

PATIENT
  Age: 68 Year
  Sex: Female

DRUGS (3)
  1. AVASTIN [Concomitant]
     Indication: METASTASES TO BONE
     Dosage: UNK, UNKNOWN
  2. CYMBALTA [Suspect]
     Indication: NEUROPATHY PERIPHERAL
     Dosage: 60 MG, QD
  3. TAXOL [Concomitant]
     Indication: METASTASES TO BONE
     Dosage: UNK, UNKNOWN

REACTIONS (3)
  - RENAL IMPAIRMENT [None]
  - OFF LABEL USE [None]
  - PROTEINURIA [None]
